FAERS Safety Report 16033038 (Version 1)
Quarter: 2019Q1

REPORT INFORMATION
  Report Type: Spontaneous
  Country: US (occurrence: US)
  Receive Date: 20190305
  Receipt Date: 20190305
  Transmission Date: 20190418
  Serious: No
  Sender: FDA-Public Use
  Company Number: US-IMPAX LABORATORIES, LLC-2018-IPXL-02213

PATIENT
  Sex: Female

DRUGS (3)
  1. CARBIDOPA-LEVODOPA ER [Suspect]
     Active Substance: CARBIDOPA\LEVODOPA
     Dosage: 100 MG, AND ONE EXTENDED RELEASE QID
     Route: 065
  2. CARBIDOPA-LEVODOPA ER [Suspect]
     Active Substance: CARBIDOPA\LEVODOPA
     Indication: PARKINSON^S DISEASE
     Dosage: UNK, QID
     Route: 065
  3. RYTARY [Suspect]
     Active Substance: CARBIDOPA\LEVODOPA
     Indication: PARKINSON^S DISEASE
     Dosage: 36.25/145MG, THREE CAPSULES, FOUR TIMES DAILY
     Route: 048
     Dates: end: 2018

REACTIONS (4)
  - Drug effect delayed [Unknown]
  - Therapeutic response shortened [Unknown]
  - Diarrhoea [Recovered/Resolved]
  - Freezing phenomenon [Recovered/Resolved]
